FAERS Safety Report 10965258 (Version 1)
Quarter: 2015Q1

REPORT INFORMATION
  Report Type: Spontaneous
  Country: US (occurrence: None)
  Receive Date: 20150327
  Receipt Date: 20150327
  Transmission Date: 20150721
  Serious: No
  Sender: FDA-Public Use
  Company Number: None

PATIENT
  Age: 49 Year
  Sex: Female
  Weight: 61.24 kg

DRUGS (12)
  1. INSULIN PUMP [Concomitant]
     Active Substance: INSULIN NOS
  2. PLALQUINIL [Concomitant]
  3. SIMVASTATIN. [Concomitant]
     Active Substance: SIMVASTATIN
  4. FISH OIL [Concomitant]
     Active Substance: FISH OIL
  5. VITAMIN B12 [Concomitant]
     Active Substance: CYANOCOBALAMIN
  6. VICTOZA [Suspect]
     Active Substance: LIRAGLUTIDE
     Indication: TYPE 1 DIABETES MELLITUS
     Dosage: .6 THEN 1.2 MG PER DAY ONCE DAILY GIVEN INTO/UNDER THE SKIN
     Route: 058
     Dates: start: 20150305, end: 20150318
  7. CITALOPRAM [Concomitant]
     Active Substance: CITALOPRAM HYDROBROMIDE
  8. CHLORATHALIDONE [Concomitant]
  9. GLUCOSAMINE [Concomitant]
     Active Substance: GLUCOSAMINE
  10. VITAMIN D [Concomitant]
     Active Substance: CHOLECALCIFEROL
  11. MULTIVITAMIN [Concomitant]
     Active Substance: VITAMINS
  12. PROBIOTIC [Concomitant]
     Active Substance: PROBIOTICS NOS

REACTIONS (1)
  - Nausea [None]

NARRATIVE: CASE EVENT DATE: 20150306
